FAERS Safety Report 5517351-X (Version None)
Quarter: 2007Q4

REPORT INFORMATION
  Report Type: 
  Country: None (occurrence: None)
  Receive Date: 20071114
  Receipt Date: 20071031
  Transmission Date: 20080405
  Serious: No
  Sender: FDA-Public Use
  Company Number: A0690747A

PATIENT
  Age: 52 Year
  Sex: Female

DRUGS (1)
  1. COMMIT [Suspect]

REACTIONS (1)
  - BREAST PAIN [None]
